FAERS Safety Report 15611178 (Version 1)
Quarter: 2018Q4

REPORT INFORMATION
  Report Type: Report from Study
  Country: FR (occurrence: FR)
  Receive Date: 20181113
  Receipt Date: 20181113
  Transmission Date: 20190205
  Serious: Yes (Other)
  Sender: FDA-Public Use
  Company Number: FR-HTU-2018FR017274

PATIENT
  Age: 56 Year
  Sex: Female

DRUGS (1)
  1. VALCHLOR [Suspect]
     Active Substance: MECHLORETHAMINE
     Indication: MYCOSIS FUNGOIDES
     Dosage: UNK
     Route: 061
     Dates: start: 201707, end: 20171015

REACTIONS (3)
  - Mycosis fungoides [Unknown]
  - Disease progression [Unknown]
  - Drug ineffective [Unknown]
